FAERS Safety Report 4877466-6 (Version None)
Quarter: 2006Q1

REPORT INFORMATION
  Report Type: 
  Country: None (occurrence: None)
  Receive Date: 20060109
  Receipt Date: 20051229
  Transmission Date: 20060701
  Serious: Yes (Other)
  Sender: FDA-Public Use
  Company Number: 2006000434

PATIENT
  Age: 58 Year
  Sex: Female
  Weight: 77.1115 kg

DRUGS (3)
  1. NICOTROL [Suspect]
     Dosage: 10 CARTRIDGES DAILY, INHALATION
     Route: 055
     Dates: start: 20051213, end: 20051219
  2. DIAZEPAM [Concomitant]
  3. PAROXETINE HCL [Concomitant]

REACTIONS (9)
  - CONFUSIONAL STATE [None]
  - DROOLING [None]
  - INFECTION [None]
  - KNEE ARTHROPLASTY [None]
  - MIGRAINE [None]
  - MOOD SWINGS [None]
  - NAUSEA [None]
  - TREATMENT NONCOMPLIANCE [None]
  - VOMITING [None]
